FAERS Safety Report 8219156-8 (Version None)
Quarter: 2012Q1

REPORT INFORMATION
  Report Type: 
  Country: None (occurrence: None)
  Receive Date: 20120319
  Receipt Date: 20120316
  Transmission Date: 20120608
  Serious: No
  Sender: FDA-Public Use
  Company Number: US-PFIZER INC-2011096243

PATIENT
  Sex: Female
  Weight: 53.968 kg

DRUGS (2)
  1. BUSPAR [Concomitant]
     Indication: ANXIETY
     Dosage: UNK, 2X/DAY
  2. CHANTIX [Suspect]
     Indication: SMOKING CESSATION THERAPY
     Dosage: 1 MG, 1X/DAY
     Dates: end: 20111201

REACTIONS (2)
  - STRESS [None]
  - NERVOUSNESS [None]
